FAERS Safety Report 10470262 (Version 1)
Quarter: 2014Q3

REPORT INFORMATION
  Report Type: Report from Study
  Country: AU (occurrence: AU)
  Receive Date: 20140923
  Receipt Date: 20140923
  Transmission Date: 20150326
  Serious: Yes (Other)
  Sender: FDA-Public Use
  Company Number: AU-SA-2014SA129415

PATIENT
  Age: 76 Year
  Sex: Male

DRUGS (4)
  1. LANTUS [Suspect]
     Active Substance: INSULIN GLARGINE
     Dosage: DOSE:42 UNIT(S)
     Route: 065
     Dates: start: 20080811
  2. ZOLADEX [Concomitant]
     Active Substance: GOSERELIN ACETATE
  3. NOVOMIX [Concomitant]
     Active Substance: INSULIN ASPART
     Dosage: 38 UNITS AM AND 36 UNITS PM
  4. METFORMIN [Concomitant]
     Active Substance: METFORMIN HYDROCHLORIDE

REACTIONS (4)
  - Coronary arterial stent insertion [Not Recovered/Not Resolved]
  - Colon cancer [Not Recovered/Not Resolved]
  - Blood glucose increased [Not Recovered/Not Resolved]
  - Prostate cancer [Not Recovered/Not Resolved]

NARRATIVE: CASE EVENT DATE: 2008
